FAERS Safety Report 14993540 (Version 1)
Quarter: 2018Q2

REPORT INFORMATION
  Report Type: Spontaneous
  Country: SE (occurrence: SE)
  Receive Date: 20180611
  Receipt Date: 20180611
  Transmission Date: 20180711
  Serious: Yes (Other)
  Sender: FDA-Public Use
  Company Number: SE-AUROBINDO-AUR-APL-2018-030216

PATIENT
  Age: 32 Year
  Sex: Male

DRUGS (1)
  1. FINASTERIDE FILM-COATED TABLETS [Suspect]
     Active Substance: FINASTERIDE
     Indication: ANDROGENETIC ALOPECIA
     Dosage: 1.25 MILLIGRAM, DAILY
     Route: 065

REACTIONS (2)
  - Micturition urgency [Recovered/Resolved]
  - Urinary retention [Recovered/Resolved]

NARRATIVE: CASE EVENT DATE: 201706
